FAERS Safety Report 18751085 (Version 3)
Quarter: 2021Q1

REPORT INFORMATION
  Report Type: Spontaneous
  Country: IN (occurrence: IN)
  Receive Date: 20210118
  Receipt Date: 20210225
  Transmission Date: 20210419
  Serious: Yes (Hospitalization, Other)
  Sender: FDA-Public Use
  Company Number: IN-MACLEODS PHARMACEUTICALS US LTD-MAC2021029750

PATIENT

DRUGS (11)
  1. TRAMADOL 50 MG TABLETS [Suspect]
     Active Substance: TRAMADOL
     Dosage: 30 DOSAGE FORM, QD, 25 TO 30 TABLETS OF 50 MG TRAMADOL (1250? 1500 MG) IN DIVIDED DOSES, OVER THE NE
     Route: 065
  2. TRAMADOL 50 MG TABLETS [Suspect]
     Active Substance: TRAMADOL
     Dosage: 25 DOSAGE FORM, QD, 25 TO 30 TABLETS OF 50 MG TRAMADOL (1250? 1500 MG) IN DIVIDED DOSES, OVER THE NE
     Route: 065
  3. VIAGRA [Suspect]
     Active Substance: SILDENAFIL CITRATE
     Dosage: 12 DOSAGE FORM, QD, INCREASED USE TO 10 TO 12 TABLETS IN 3 TO 4 DIVIDED DOSES, QD (UPTO2000 MG), VIA
     Route: 048
  4. VIAGRA [Suspect]
     Active Substance: SILDENAFIL CITRATE
     Dosage: 2000 MILLIGRAM, QD, 2000 MG IN 3 TO 4 DIVIDED DOSE, VIAGRA (SILDENAFIL)
     Route: 048
  5. ALPRAZOLAM. [Suspect]
     Active Substance: ALPRAZOLAM
     Dosage: 50 DOSAGE FORM, QD, 40 TO 50 TABLETS OF 0.5 MG ALPRAZOLAM (20?25 MG) IN DIVIDED DOSES
     Route: 065
  6. ALPRAZOLAM. [Suspect]
     Active Substance: ALPRAZOLAM
     Indication: PRODUCT USED FOR UNKNOWN INDICATION
     Dosage: UNK
     Route: 065
  7. ALPRAZOLAM. [Suspect]
     Active Substance: ALPRAZOLAM
     Dosage: 40 DOSAGE FORM, QD, 40 TO 50 TABLETS OF 0.5 MG ALPRAZOLAM (20?25 MG) IN DIVIDED DOSES
     Route: 065
  8. VIAGRA [Suspect]
     Active Substance: SILDENAFIL CITRATE
     Dosage: 10 DOSAGE FORM, QD, INCREASED USE TO 10 TO 12 TABLETS IN 3 TO 4 DIVIDED DOSES, QD (UPTO2000 MG), VIA
     Route: 048
  9. TRAMADOL 50 MG TABLETS [Suspect]
     Active Substance: TRAMADOL
     Indication: PRODUCT USED FOR UNKNOWN INDICATION
     Dosage: UNK
     Route: 065
  10. VIAGRA [Suspect]
     Active Substance: SILDENAFIL CITRATE
     Indication: PRODUCT USED FOR UNKNOWN INDICATION
     Dosage: 1 DOSAGE FORM, QD, 1 TO 2 TABLETS OF 50 MG INITIALLY, VIAGRA (SILDENAFIL)
     Route: 048
  11. VIAGRA [Suspect]
     Active Substance: SILDENAFIL CITRATE
     Dosage: 2 DOSAGE FORM, QD, 1 TO 2 TABLETS OF 50 MG INITIALLY, VIAGRA (SILDENAFIL)
     Route: 048

REACTIONS (11)
  - Vision blurred [Recovered/Resolved]
  - Withdrawal syndrome [Unknown]
  - Drug tolerance [Unknown]
  - Drug use disorder [Unknown]
  - Feeling of relaxation [Unknown]
  - Headache [Recovered/Resolved]
  - Euphoric mood [Unknown]
  - Drug abuse [Unknown]
  - Obsessive thoughts [Unknown]
  - Drug dependence [Unknown]
  - Intentional product misuse [Unknown]
